FAERS Safety Report 8873878 (Version 1)
Quarter: 2012Q4

REPORT INFORMATION
  Report Type: 
  Country: US (occurrence: US)
  Receive Date: 20121023
  Receipt Date: 20121023
  Transmission Date: 20130627
  Serious: No
  Sender: FDA-Public Use
  Company Number: US-ASTELLAS-2012US003206

PATIENT
  Age: 75 Year
  Sex: Female

DRUGS (1)
  1. LEXISCAN [Suspect]
     Indication: CARDIAC STRESS TEST
     Dosage: UNK
     Route: 042

REACTIONS (6)
  - Incorrect dose administered [Unknown]
  - Injection site extravasation [Recovered/Resolved]
  - Nervousness [Unknown]
  - Nausea [Recovering/Resolving]
  - Dizziness [Unknown]
  - Headache [Unknown]
